FAERS Safety Report 8249291-X (Version None)
Quarter: 2012Q2

REPORT INFORMATION
  Report Type: 
  Country: None (occurrence: None)
  Receive Date: 20120402
  Receipt Date: 20120323
  Transmission Date: 20120825
  Serious: Yes (Hospitalization)
  Sender: FDA-Public Use
  Company Number: US-BAYER-2011-098311

PATIENT
  Age: 29 Year
  Sex: Female
  Weight: 77.098 kg

DRUGS (13)
  1. NAPROXEN [Concomitant]
     Dosage: 550 MG, UNK
     Route: 048
     Dates: start: 20070910
  2. YAZ [Suspect]
     Indication: CONTRACEPTION
     Dosage: UNK
     Route: 048
     Dates: start: 20050101
  3. AMOXICILLIN [Concomitant]
     Dosage: UNK
     Route: 048
     Dates: start: 20071128
  4. PROMETHAZINE [Concomitant]
     Dosage: 25 MG, UNK
     Route: 048
     Dates: start: 20071130, end: 20080104
  5. SKELAXIN [Concomitant]
     Dosage: 800 MG, UNK
     Route: 048
     Dates: start: 20080920, end: 20081128
  6. HYDROCODONE BITARTRATE [Concomitant]
     Dosage: 5 UNK, UNK
     Route: 048
     Dates: start: 20011130, end: 20071210
  7. ZOLPIDEM [Concomitant]
     Indication: SLEEP DISORDER THERAPY
     Dosage: UNK
     Dates: start: 20071210, end: 20100309
  8. NAPROXEN [Concomitant]
     Dosage: 550 MG, UNK
     Route: 048
     Dates: start: 20071120
  9. YAZ [Suspect]
     Dosage: UNK
     Dates: start: 20070115
  10. YAZ [Suspect]
     Dosage: UNK
     Dates: start: 20080324, end: 20090514
  11. TIZANIDINE HCL [Concomitant]
     Dosage: 4 MG, UNK
     Route: 048
     Dates: start: 20071124
  12. MEPERIDINE HCL [Concomitant]
     Dosage: 50 MG, UNK
     Route: 048
     Dates: start: 20071130
  13. NAPROXEN [Concomitant]
     Dosage: 550 MG, UNK
     Route: 048
     Dates: start: 20080828

REACTIONS (6)
  - FEAR [None]
  - CHOLELITHIASIS [None]
  - PAIN [None]
  - CHOLECYSTITIS [None]
  - POST PROCEDURAL COMPLICATION [None]
  - BILE DUCT STONE [None]
